FAERS Safety Report 6872914-4 (Version None)
Quarter: 2010Q3

REPORT INFORMATION
  Report Type: 
  Country: None (occurrence: None)
  Receive Date: 20100723
  Receipt Date: 20081111
  Transmission Date: 20110219
  Serious: No
  Sender: FDA-Public Use
  Company Number: US-PFIZER INC-2008097586

PATIENT
  Sex: Female
  Weight: 79.5 kg

DRUGS (4)
  1. CHANTIX [Suspect]
     Indication: SMOKING CESSATION THERAPY
     Dates: start: 20081028
  2. LISINOPRIL [Concomitant]
  3. SITAGLIPTIN [Concomitant]
  4. ACTOS [Concomitant]

REACTIONS (3)
  - DECREASED APPETITE [None]
  - DIARRHOEA [None]
  - NAUSEA [None]
